FAERS Safety Report 8861041 (Version 1)
Quarter: 2012Q4

REPORT INFORMATION
  Report Type: Spontaneous
  Country: GB (occurrence: None)
  Receive Date: 20121022
  Receipt Date: 20121022
  Transmission Date: 20130627
  Serious: Yes (Other)
  Sender: FDA-Public Use
  Company Number: FK201203032

PATIENT
  Sex: Female
  Weight: 76 kg

DRUGS (11)
  1. OXALIPLATIN (OXALIPLATIN) [Suspect]
     Indication: GASTROINTESTINAL CARCINOMA
     Route: 042
  2. CAPECITABINE [Suspect]
     Indication: GASTROINTESTINAL CARCINOMA
     Route: 048
  3. ATENOLOL [Concomitant]
  4. PROCHLORPERAZINE MALEATE [Concomitant]
  5. DEXAMETHASONE (DEXAMETHASONE) [Concomitant]
  6. LANTUS (INSULIN GLARGINE) [Concomitant]
  7. LISINOPRIL (LISINOPRIL) [Concomitant]
  8. METFORMIN (METFORMIN) [Concomitant]
  9. NOVORAPID (INDULIN ASPART) [Concomitant]
  10. SIMVASTATIN (SIMVASTATIN) [Concomitant]
  11. ZOPICLONE (ZOPICLONE) [Concomitant]

REACTIONS (4)
  - Pneumonia aspiration [None]
  - Ileus [None]
  - Lactic acidosis [None]
  - Shock [None]
